FAERS Safety Report 7125730-2 (Version None)
Quarter: 2010Q4

REPORT INFORMATION
  Report Type: 
  Country: None (occurrence: None)
  Receive Date: 20101129
  Receipt Date: 20101119
  Transmission Date: 20110411
  Serious: Yes (Hospitalization)
  Sender: FDA-Public Use
  Company Number: B0676773A

PATIENT
  Sex: Male
  Weight: 56.2 kg

DRUGS (8)
  1. MELPHALAN HYDROCHLORIDE [Suspect]
     Indication: MULTIPLE MYELOMA
     Dosage: 16MG PER DAY
     Route: 065
     Dates: start: 20100414
  2. THALIDOMIDE [Suspect]
     Indication: MULTIPLE MYELOMA
     Dosage: 200MG PER DAY
     Route: 048
     Dates: start: 20100414
  3. PREDNISOLONE [Suspect]
     Indication: MULTIPLE MYELOMA
     Dosage: 125MG PER DAY
     Route: 065
     Dates: start: 20100414
  4. ASPEGIC 1000 [Concomitant]
     Indication: PROPHYLAXIS
     Dates: start: 20100414
  5. OXYCONTIN [Concomitant]
     Indication: BACK PAIN
     Dates: start: 20100702
  6. CONTALAX [Concomitant]
     Indication: CONSTIPATION
     Dosage: 10MG PER DAY
     Route: 048
     Dates: start: 20100702, end: 20100908
  7. TERCIAN [Concomitant]
     Route: 048
     Dates: start: 20100702
  8. DURAGESIC-100 [Concomitant]
     Indication: BACK PAIN
     Dosage: 100MCG PER DAY
     Route: 062
     Dates: start: 20100821, end: 20100908

REACTIONS (11)
  - AGITATION [None]
  - CANDIDIASIS [None]
  - DECREASED APPETITE [None]
  - DEHYDRATION [None]
  - DRY MOUTH [None]
  - GENERAL PHYSICAL HEALTH DETERIORATION [None]
  - OROPHARYNGITIS FUNGAL [None]
  - PRODUCTIVE COUGH [None]
  - PYREXIA [None]
  - VOMITING [None]
  - WEIGHT DECREASED [None]
